FAERS Safety Report 6371461-6 (Version None)
Quarter: 2009Q3

REPORT INFORMATION
  Report Type: 
  Country: None (occurrence: None)
  Receive Date: 20090923
  Receipt Date: 20070817
  Transmission Date: 20100115
  Serious: No
  Sender: FDA-Public Use
  Company Number: US-ASTRAZENECA-2007UW12265

PATIENT
  Age: 20432 Day
  Sex: Female
  Weight: 94.8 kg

DRUGS (8)
  1. SEROQUEL [Suspect]
     Indication: DEPRESSION
     Dosage: 150 MG - 200 MG
     Route: 048
     Dates: start: 20040201, end: 20060601
  2. SEROQUEL [Suspect]
     Route: 048
     Dates: start: 20060413
  3. WELLBUTRIN [Concomitant]
     Dosage: 300
     Route: 065
  4. ASPIRIN [Concomitant]
     Route: 065
  5. CLONAZEPAM [Concomitant]
     Route: 065
  6. METFORMIN HCL [Concomitant]
     Route: 065
  7. ATENOLOL [Concomitant]
     Route: 065
  8. DIOVAN [Concomitant]
     Dosage: 160
     Route: 065

REACTIONS (4)
  - ARTHRALGIA [None]
  - PAIN [None]
  - ROAD TRAFFIC ACCIDENT [None]
  - TYPE 2 DIABETES MELLITUS [None]
